FAERS Safety Report 5936108-9 (Version None)
Quarter: 2008Q4

REPORT INFORMATION
  Report Type: 
  Country: None (occurrence: None)
  Receive Date: 20081030
  Receipt Date: 20081021
  Transmission Date: 20090506
  Serious: Yes (Other)
  Sender: FDA-Public Use
  Company Number: PHHY2008FR25564

PATIENT
  Sex: Male

DRUGS (6)
  1. TAREG [Suspect]
     Indication: HYPERTENSION
     Dosage: 80 MG, UNK
     Route: 048
  2. TAREG [Suspect]
     Dosage: 160 MG, UNK
     Route: 048
     Dates: start: 20080601
  3. LASIX [Concomitant]
  4. CARDENSIEL [Concomitant]
  5. FOZITEC [Concomitant]
  6. ALLOPURINOL [Concomitant]

REACTIONS (7)
  - HAEMORRHAGIC DISORDER [None]
  - HYPERKERATOSIS [None]
  - NAIL DISORDER [None]
  - PHOTOSENSITIVITY REACTION [None]
  - PSORIASIS [None]
  - RASH PUSTULAR [None]
  - THROMBOCYTOPENIA [None]
